FAERS Safety Report 16351644 (Version 1)
Quarter: 2019Q2

REPORT INFORMATION
  Report Type: Spontaneous
  Country: US (occurrence: US)
  Receive Date: 20190418
  Receipt Date: 20190418
  Transmission Date: 20190711
  Serious: Yes (Other)
  Sender: FDA-Public Use
  Company Number: None

PATIENT
  Age: 82 Year
  Sex: Female
  Weight: 70.31 kg

DRUGS (1)
  1. LOSARTAN. [Suspect]
     Active Substance: LOSARTAN
     Indication: HYPERTENSION
     Dosage: ?          QUANTITY:1 PILL PER DAY;OTHER FREQUENCY:1;?
     Route: 048

REACTIONS (2)
  - Application site irritation [None]
  - Neoplasm malignant [None]

NARRATIVE: CASE EVENT DATE: 20150220
